FAERS Safety Report 21727197 (Version 1)
Quarter: 2022Q4

REPORT INFORMATION
  Report Type: Spontaneous
  Country: US (occurrence: US)
  Receive Date: 20221214
  Receipt Date: 20221214
  Transmission Date: 20230113
  Serious: No
  Sender: FDA-Public Use
  Company Number: US-BIOVITRUM-2022US14671

PATIENT
  Sex: Male
  Weight: 8 kg

DRUGS (9)
  1. SYNAGIS [Suspect]
     Active Substance: PALIVIZUMAB
     Indication: Heart disease congenital
  2. DIURIL [Concomitant]
     Active Substance: CHLOROTHIAZIDE
     Dosage: 250 MG/5 ML
  3. OPSUMIT [Concomitant]
     Active Substance: MACITENTAN
  4. POL-VI-SOL [Concomitant]
     Dosage: 250-50/ML
  5. PROTONIX [Concomitant]
     Active Substance: PANTOPRAZOLE SODIUM
  6. UPTRAVI [Concomitant]
     Active Substance: SELEXIPAG
     Dosage: 200 MCG
  7. CAROSPIR [Concomitant]
     Active Substance: SPIRONOLACTONE
     Dosage: 25 MG/5ML
  8. ASPIRIN [Concomitant]
     Active Substance: ASPIRIN
  9. SILDENAFIL CITRATE [Concomitant]
     Active Substance: SILDENAFIL CITRATE

REACTIONS (1)
  - Pyrexia [Unknown]
